FAERS Safety Report 6769595-7 (Version None)
Quarter: 2010Q2

REPORT INFORMATION
  Report Type: 
  Country: None (occurrence: None)
  Receive Date: 20100615
  Receipt Date: 20100604
  Transmission Date: 20101027
  Serious: Yes (Death, Hospitalization, Other)
  Sender: FDA-Public Use
  Company Number: US-BAYER-201021873NA

PATIENT
  Age: 38 Year
  Sex: Female

DRUGS (15)
  1. FLUDARA [Suspect]
     Indication: CHRONIC MYELOID LEUKAEMIA
     Dosage: AS USED: 80 MG
     Route: 042
     Dates: start: 20100423, end: 20100426
  2. NEUPOGEN [Suspect]
     Indication: CHRONIC MYELOID LEUKAEMIA
     Dosage: AS USED: 780 ?G
     Route: 058
     Dates: start: 20100420, end: 20100425
  3. MOZOBIL [Suspect]
     Indication: CHRONIC MYELOID LEUKAEMIA
     Dosage: AS USED: 112 MG
     Route: 058
     Dates: start: 20100422, end: 20100425
  4. BUSULFEX [Suspect]
     Indication: CHRONIC MYELOID LEUKAEMIA
     Dosage: AS USED: 230 MG
     Route: 042
     Dates: start: 20100423, end: 20100426
  5. ANTI-THYMOCYTE GLOBULIN NOS [Suspect]
     Indication: CHRONIC MYELOID LEUKAEMIA
     Dosage: TOTAL DAILY DOSE: 46 MG
     Dates: start: 20100426, end: 20100426
  6. ANTI-THYMOCYTE GLOBULIN NOS [Suspect]
     Dosage: TOTAL DAILY DOSE: 138 MG
     Dates: start: 20100427, end: 20100427
  7. ANTI-THYMOCYTE GLOBULIN NOS [Suspect]
     Dosage: TOTAL DAILY DOSE: 184 MG
     Dates: start: 20100428, end: 20100428
  8. ACYCLOVIR [Concomitant]
     Dosage: TOTAL DAILY DOSE: 800 MG
     Route: 042
  9. PHYTONADIONE [Concomitant]
     Dosage: TOTAL DAILY DOSE: 10 MG
     Route: 042
  10. CEFEPIME [Concomitant]
     Dosage: TOTAL DAILY DOSE: 6 G
     Route: 042
  11. VANCOMYCIN [Concomitant]
     Dosage: TOTAL DAILY DOSE: 2 G
     Route: 042
  12. LEVETIRACETAM [Concomitant]
     Dosage: TOTAL DAILY DOSE: 1000 MG
     Route: 042
  13. ANIDULAFUNGIN [Concomitant]
     Dosage: TOTAL DAILY DOSE: 100 MG
     Route: 042
  14. PANTOPRAZOLE [Concomitant]
     Dosage: TOTAL DAILY DOSE: 40 MG
     Route: 042
  15. PHENYLEPHRINE [Concomitant]
     Dosage: 50-300 MCG/MIN

REACTIONS (2)
  - CEREBRAL HAEMORRHAGE [None]
  - THROMBOCYTOPENIA [None]
